FAERS Safety Report 16078525 (Version 4)
Quarter: 2020Q1

REPORT INFORMATION
  Report Type: Spontaneous
  Country: FR (occurrence: FR)
  Receive Date: 20190315
  Receipt Date: 20200107
  Transmission Date: 20200409
  Serious: Yes (Disabling)
  Sender: FDA-Public Use
  Company Number: FR-PFIZER INC-2019111219

PATIENT
  Age: 33 Year
  Sex: Male

DRUGS (1)
  1. CHAMPIX [Suspect]
     Active Substance: VARENICLINE TARTRATE
     Indication: SMOKING CESSATION THERAPY
     Dosage: UNK
     Dates: start: 200905, end: 2009

REACTIONS (14)
  - General physical health deterioration [Recovered/Resolved]
  - Confusional state [Recovered/Resolved]
  - Nausea [Recovered/Resolved]
  - Obsessive-compulsive disorder [Recovered/Resolved]
  - Hot flush [Recovered/Resolved]
  - Impaired work ability [Recovered/Resolved]
  - Dissociation [Recovered/Resolved]
  - Chills [Recovered/Resolved]
  - Vertigo [Recovered/Resolved]
  - Hypersomnia [Recovered/Resolved]
  - Anxiety [Recovered/Resolved]
  - Delusion [Recovered/Resolved]
  - Dizziness [Recovered/Resolved]
  - Fatigue [Recovered/Resolved]

NARRATIVE: CASE EVENT DATE: 200905
